FAERS Safety Report 8317146-8 (Version None)
Quarter: 2012Q2

REPORT INFORMATION
  Report Type: 
  Country: None (occurrence: None)
  Receive Date: 20120427
  Receipt Date: 20120418
  Transmission Date: 20120825
  Serious: Yes (Other)
  Sender: FDA-Public Use
  Company Number: PHHY2012TN033738

PATIENT
  Age: 76 Year
  Sex: Female

DRUGS (1)
  1. TASIGNA [Suspect]
     Indication: CHRONIC MYELOID LEUKAEMIA
     Dosage: 400 MG, BID
     Route: 048
     Dates: start: 20111001, end: 20120401

REACTIONS (3)
  - VITH NERVE PARALYSIS [None]
  - TRIGEMINAL NERVE PARESIS [None]
  - DIPLOPIA [None]
